FAERS Safety Report 8416544-1 (Version None)
Quarter: 2012Q2

REPORT INFORMATION
  Report Type: 
  Country: None (occurrence: None)
  Receive Date: 20120606
  Receipt Date: 20120529
  Transmission Date: 20120825
  Serious: Yes (Other)
  Sender: FDA-Public Use
  Company Number: PL-GLAXOSMITHKLINE-B0798875A

PATIENT
  Age: 49 Year
  Sex: Female

DRUGS (4)
  1. ENOXAPARIN [Suspect]
     Indication: THROMBOSIS
     Dosage: 1MGK TWICE PER DAY
     Route: 065
  2. FONDAPARINUX SODIUM [Suspect]
     Indication: CEREBRAL VENOUS THROMBOSIS
     Dosage: 7.5MG PER DAY
     Route: 065
     Dates: start: 20090329, end: 20090402
  3. ESTROGEN-GESTAGEN COMBINATION [Concomitant]
     Indication: CONTRACEPTION
     Route: 048
  4. PLATELETS [Concomitant]

REACTIONS (4)
  - THROMBOSIS [None]
  - OFF LABEL USE [None]
  - HEPARIN-INDUCED THROMBOCYTOPENIA [None]
  - HAEMORRHAGIC DIATHESIS [None]
